FAERS Safety Report 18447311 (Version 1)
Quarter: 2020Q4

REPORT INFORMATION
  Report Type: Report from Study
  Country: ZA (occurrence: ZA)
  Receive Date: 20201030
  Receipt Date: 20201030
  Transmission Date: 20210114
  Serious: Yes (Other)
  Sender: FDA-Public Use
  Company Number: NVSC2020ZA287688

PATIENT
  Sex: Male

DRUGS (1)
  1. OMEZ [Suspect]
     Active Substance: OMEPRAZOLE
     Indication: CARDIAC FAILURE
     Dosage: 20 MG, QD (TABLET)
     Route: 048

REACTIONS (10)
  - Cardiac failure [Unknown]
  - Dyspnoea [Unknown]
  - Joint swelling [Unknown]
  - Abdominal distension [Unknown]
  - NYHA classification [Unknown]
  - Brain natriuretic peptide abnormal [Unknown]
  - Peripheral swelling [Unknown]
  - Fatigue [Unknown]
  - Glomerular filtration rate decreased [Unknown]
  - Product use in unapproved indication [Unknown]
